FAERS Safety Report 9927402 (Version 1)
Quarter: 2014Q1

REPORT INFORMATION
  Report Type: Spontaneous
  Country: US (occurrence: US)
  Receive Date: 20140226
  Receipt Date: 20140226
  Transmission Date: 20141002
  Serious: Yes (Hospitalization)
  Sender: FDA-Public Use
  Company Number: US-B.I. PHARMACEUTICALS,INC./RIDGEFIELD-2014-BI-08119BP

PATIENT
  Age: 54 Year
  Sex: Female
  Weight: 47 kg

DRUGS (3)
  1. SPIRIVA [Suspect]
     Indication: CHRONIC OBSTRUCTIVE PULMONARY DISEASE
     Dosage: 18 MCG
     Route: 055
     Dates: start: 2010
  2. ADVAIR [Concomitant]
     Indication: CHRONIC OBSTRUCTIVE PULMONARY DISEASE
     Route: 055
     Dates: start: 2010
  3. OXYCODONE [Concomitant]
     Indication: SCOLIOSIS
     Dosage: 90 MG
     Route: 048
     Dates: start: 2010

REACTIONS (2)
  - Hepatic failure [Recovered/Resolved]
  - Renal failure [Recovered/Resolved]
